FAERS Safety Report 8756662 (Version 1)
Quarter: 2012Q4

REPORT INFORMATION
  Report Type: Report from Study
  Country: HK (occurrence: HK)
  Receive Date: 20120828
  Receipt Date: 20120828
  Transmission Date: 20130627
  Serious: Yes (Hospitalization)
  Sender: FDA-Public Use
  Company Number: HK-BAYER-2012-087519

PATIENT
  Age: 52 Year
  Sex: Male

DRUGS (2)
  1. CIPROFLOXACIN HYDROCHLORIDE [Suspect]
     Indication: ANTIBIOTIC PROPHYLAXIS
     Dosage: 250 mg, 2 hours before procedure and q12 h after procedure x2
  2. AMOXICILLIN/CLAVULANATE POTASSIUM [Suspect]
     Indication: ANTIBIOTIC PROPHYLAXIS
     Dosage: 1 g, 2 hours before procedure and q12 h after procedure x2

REACTIONS (3)
  - Infection [Recovered/Resolved]
  - Pyrexia [None]
  - Chills [None]
